APPROVED DRUG PRODUCT: SYNCURINE
Active Ingredient: DECAMETHONIUM BROMIDE
Strength: 1MG/ML
Dosage Form/Route: INJECTABLE;INJECTION
Application: N006931 | Product #002
Applicant: GLAXOSMITHKLINE
Approved: Approved Prior to Jan 1, 1982 | RLD: No | RS: No | Type: DISCN